FAERS Safety Report 21287623 (Version 3)
Quarter: 2023Q1

REPORT INFORMATION
  Report Type: Report from Study
  Country: US (occurrence: US)
  Receive Date: 20220902
  Receipt Date: 20230221
  Transmission Date: 20230417
  Serious: Yes (Other)
  Sender: FDA-Public Use
  Company Number: US-ABBVIE-22K-163-4492080-00

PATIENT
  Age: 51 Year
  Sex: Male

DRUGS (2)
  1. IMBRUVICA [Suspect]
     Active Substance: IBRUTINIB
     Indication: Chronic lymphocytic leukaemia
     Dosage: FORM STRENGTH 420 MG
     Route: 048
     Dates: start: 2015
  2. IMBRUVICA [Suspect]
     Active Substance: IBRUTINIB
     Indication: Chronic lymphocytic leukaemia
     Dosage: FORM STRENGTH 420 MG
     Route: 048
     Dates: start: 20180329

REACTIONS (15)
  - Hernia [Unknown]
  - Pain [Unknown]
  - Sensitive skin [Unknown]
  - Pain of skin [Unknown]
  - Dermatitis [Recovered/Resolved]
  - Scratch [Unknown]
  - White blood cell count increased [Recovered/Resolved]
  - Skin atrophy [Not Recovered/Not Resolved]
  - Haemorrhage [Unknown]
  - Increased tendency to bruise [Not Recovered/Not Resolved]
  - Contusion [Unknown]
  - Fatigue [Unknown]
  - Skin fragility [Not Recovered/Not Resolved]
  - Onychoclasis [Not Recovered/Not Resolved]
  - Inflammation [Recovered/Resolved]

NARRATIVE: CASE EVENT DATE: 20150101
